FAERS Safety Report 8191365-6 (Version None)
Quarter: 2012Q1

REPORT INFORMATION
  Report Type: 
  Country: None (occurrence: None)
  Receive Date: 20120307
  Receipt Date: 20120301
  Transmission Date: 20120608
  Serious: Yes (Hospitalization, Other)
  Sender: FDA-Public Use
  Company Number: FR-ALLERGAN-1202175US

PATIENT
  Age: 60 Year
  Sex: Female

DRUGS (3)
  1. AZOPT [Concomitant]
     Indication: PRODUCT USED FOR UNKNOWN INDICATION
     Dosage: UNK
     Dates: start: 20111227
  2. BIMATOPROST AND TIMOLOL MALEATE [Concomitant]
     Indication: PRODUCT USED FOR UNKNOWN INDICATION
     Dosage: UNK
     Dates: start: 20111227
  3. OZURDEX [Suspect]
     Indication: MACULAR OEDEMA
     Dosage: UNK
     Dates: start: 20111216

REACTIONS (6)
  - VISUAL ACUITY REDUCED [None]
  - CATARACT CORTICAL [None]
  - COMPLICATION OF DEVICE INSERTION [None]
  - POSTERIOR CAPSULE RUPTURE [None]
  - RETINAL DETACHMENT [None]
  - OCULAR HYPERTENSION [None]
